FAERS Safety Report 18782861 (Version 2)
Quarter: 2022Q1

REPORT INFORMATION
  Report Type: Spontaneous
  Country: US (occurrence: US)
  Receive Date: 20210125
  Receipt Date: 20220303
  Transmission Date: 20220423
  Serious: No
  Sender: FDA-Public Use
  Company Number: US-ALLERGAN-2049851US

PATIENT
  Age: 66 Year
  Sex: Female

DRUGS (6)
  1. RESTASIS [Suspect]
     Active Substance: CYCLOSPORINE
     Indication: Blepharitis
     Dosage: 2 GTT, BID
     Route: 047
  2. RESTASIS [Suspect]
     Active Substance: CYCLOSPORINE
     Indication: Corneal dystrophy
  3. RESTASIS [Suspect]
     Active Substance: CYCLOSPORINE
     Indication: Dry eye
  4. LISINOPRIL [Concomitant]
     Active Substance: LISINOPRIL
     Indication: Hypertension
  5. CARVEDILOL [Concomitant]
     Active Substance: CARVEDILOL
     Indication: Hypertension
  6. OASIS TEARS [Concomitant]
     Active Substance: GLYCERIN
     Indication: Dry eye
     Route: 047

REACTIONS (7)
  - COVID-19 [Unknown]
  - Swelling of eyelid [Recovered/Resolved]
  - Lagophthalmos [Recovered/Resolved]
  - Dacryostenosis acquired [Recovered/Resolved]
  - Eye pain [Recovered/Resolved]
  - Off label use [Unknown]
  - Ocular hyperaemia [Recovered/Resolved]

NARRATIVE: CASE EVENT DATE: 20201101
